FAERS Safety Report 5520892-2 (Version None)
Quarter: 2007Q4

REPORT INFORMATION
  Report Type: 
  Country: None (occurrence: None)
  Receive Date: 20071119
  Receipt Date: 20071108
  Transmission Date: 20080405
  Serious: Yes (Hospitalization)
  Sender: FDA-Public Use
  Company Number: B0495820A

PATIENT
  Age: 30 Year
  Sex: Female

DRUGS (1)
  1. NARAMIG [Suspect]
     Indication: MIGRAINE
     Route: 048

REACTIONS (11)
  - DRUG ABUSE [None]
  - FEELING HOT [None]
  - HEADACHE [None]
  - HYPERTHERMIA [None]
  - HYPOTENSION [None]
  - PAIN [None]
  - PARAESTHESIA [None]
  - PHLEBITIS [None]
  - PULMONARY EMBOLISM [None]
  - TRANSAMINASES INCREASED [None]
  - VOMITING [None]
